FAERS Safety Report 21005766 (Version 1)
Quarter: 2022Q2

REPORT INFORMATION
  Report Type: Spontaneous
  Country: JP (occurrence: JP)
  Receive Date: 20220624
  Receipt Date: 20220624
  Transmission Date: 20220721
  Serious: Yes (Hospitalization, Other)
  Sender: FDA-Public Use
  Company Number: JP-AMGEN-JPNSP2022107412

PATIENT

DRUGS (1)
  1. OTEZLA [Suspect]
     Active Substance: APREMILAST
     Indication: Behcet^s syndrome
     Dosage: 60 MILLIGRAM, BID
     Route: 048

REACTIONS (4)
  - Retinal vein occlusion [Recovered/Resolved]
  - Cataract [Recovered/Resolved]
  - Anterior chamber inflammation [Recovered/Resolved]
  - Eye disorder [Recovered/Resolved]
